FAERS Safety Report 10193219 (Version 1)
Quarter: 2014Q2

REPORT INFORMATION
  Report Type: Spontaneous
  Country: US (occurrence: US)
  Receive Date: 20140524
  Receipt Date: 20140524
  Transmission Date: 20141212
  Serious: No
  Sender: FDA-Public Use
  Company Number: US-SA-2013SA116521

PATIENT
  Sex: Male

DRUGS (3)
  1. LANTUS [Suspect]
     Dosage: PRODUCT START DATE- FOR ABOUT 5 YEARS
     Route: 065
  2. APIDRA SOLOSTAR [Concomitant]
     Dosage: PRODUCT START DATE- FOR 3 MONTHS
  3. SOLOSTAR [Concomitant]

REACTIONS (1)
  - Hearing impaired [Unknown]
